FAERS Safety Report 23490566 (Version 2)
Quarter: 2024Q1

REPORT INFORMATION
  Report Type: Spontaneous
  Country: JP (occurrence: JP)
  Receive Date: 20240206
  Receipt Date: 20240305
  Transmission Date: 20240410
  Serious: Yes (Hospitalization, Congenital Anomaly, Other)
  Sender: FDA-Public Use
  Company Number: JP-BRISTOL-MYERS SQUIBB COMPANY-2024-014180

PATIENT
  Age: 61 Year
  Sex: Male

DRUGS (4)
  1. YERVOY [Suspect]
     Active Substance: IPILIMUMAB
     Indication: Metastatic renal cell carcinoma
     Route: 041
  2. OPDIVO [Suspect]
     Active Substance: NIVOLUMAB
     Indication: Metastatic renal cell carcinoma
     Route: 041
     Dates: start: 2020, end: 202009
  3. THEOPHYLLINE [Concomitant]
     Active Substance: THEOPHYLLINE
     Indication: Asthma
  4. PREDONINE [Concomitant]
     Active Substance: PREDNISOLONE
     Indication: Asthma
     Dosage: 5MG/DAY

REACTIONS (10)
  - Haemophagocytic lymphohistiocytosis [Recovered/Resolved]
  - Pyrexia [Unknown]
  - Headache [Unknown]
  - Immune-mediated hepatic disorder [Unknown]
  - Splenomegaly [Unknown]
  - Adrenal insufficiency [Unknown]
  - Cytopenia [Unknown]
  - Hyponatraemia [Unknown]
  - X-linked lymphoproliferative syndrome [Unknown]
  - Interleukin-2 receptor increased [Unknown]

NARRATIVE: CASE EVENT DATE: 20200901
